FAERS Safety Report 14309003 (Version 1)
Quarter: 2017Q4

REPORT INFORMATION
  Report Type: Spontaneous
  Country: FR (occurrence: FR)
  Receive Date: 20171220
  Receipt Date: 20171220
  Transmission Date: 20180321
  Serious: Yes (Hospitalization)
  Sender: FDA-Public Use
  Company Number: FR-ABBVIE-17K-056-2197600-00

PATIENT
  Age: 67 Year
  Sex: Female
  Weight: 76 kg

DRUGS (3)
  1. AERIUS [Concomitant]
     Active Substance: DESLORATADINE
     Indication: URTICARIA
     Dosage: 5 MG
     Route: 048
     Dates: start: 20170816
  2. HUMIRA [Suspect]
     Active Substance: ADALIMUMAB
     Indication: SPONDYLITIS
     Route: 058
     Dates: start: 20170803, end: 20170803
  3. LAMALINE [Concomitant]
     Active Substance: ACETAMINOPHEN\CAFFEINE\OPIUM
     Indication: PAIN
     Dosage: SI BESOIN
     Route: 048
     Dates: start: 201708

REACTIONS (4)
  - Pyrexia [Recovered/Resolved]
  - Hypersensitivity [Recovered/Resolved]
  - Urticaria [Recovered/Resolved]
  - Pruritus [Recovered/Resolved]

NARRATIVE: CASE EVENT DATE: 20170811
